FAERS Safety Report 13696198 (Version 1)
Quarter: 2017Q2

REPORT INFORMATION
  Report Type: Spontaneous
  Country: US (occurrence: US)
  Receive Date: 20170628
  Receipt Date: 20170628
  Transmission Date: 20170830
  Serious: Yes (Other)
  Sender: FDA-Public Use
  Company Number: US-ROCHE-1946854

PATIENT
  Age: 72 Year
  Sex: Female
  Weight: 100.33 kg

DRUGS (5)
  1. HERCEPTIN [Suspect]
     Active Substance: TRASTUZUMAB
     Dosage: MAINTENANCE DOSE?6MG/KG
     Route: 042
     Dates: start: 20160531, end: 20170124
  2. PERJETA [Suspect]
     Active Substance: PERTUZUMAB
     Dosage: 6 CYCLES
     Route: 042
     Dates: end: 20160510
  3. HERCEPTIN [Suspect]
     Active Substance: TRASTUZUMAB
     Indication: HER-2 POSITIVE BREAST CANCER
     Route: 042
     Dates: start: 20160126, end: 20160510
  4. TAXOTERE [Concomitant]
     Active Substance: DOCETAXEL
     Dosage: SIX CYCLES
     Route: 065
  5. PERJETA [Suspect]
     Active Substance: PERTUZUMAB
     Indication: HER-2 POSITIVE BREAST CANCER
     Dosage: FIRST DOSE
     Route: 042
     Dates: start: 20160126

REACTIONS (2)
  - Blood magnesium decreased [Unknown]
  - Blood creatine increased [Recovered/Resolved]

NARRATIVE: CASE EVENT DATE: 20160205
